FAERS Safety Report 23035164 (Version 2)
Quarter: 2023Q4

REPORT INFORMATION
  Report Type: Spontaneous
  Country: US (occurrence: US)
  Receive Date: 20231005
  Receipt Date: 20231012
  Transmission Date: 20240109
  Serious: No
  Sender: FDA-Public Use
  Company Number: US-BIOMARINAP-US-2023-153152

PATIENT

DRUGS (1)
  1. NAGLAZYME [Suspect]
     Active Substance: GALSULFASE
     Indication: Mucopolysaccharidosis IV
     Dosage: 10 MILLIGRAM, QW
     Route: 042
     Dates: start: 20000617

REACTIONS (2)
  - Back pain [Unknown]
  - Back injury [Unknown]

NARRATIVE: CASE EVENT DATE: 20231003
